FAERS Safety Report 8214656-9 (Version None)
Quarter: 2012Q1

REPORT INFORMATION
  Report Type: 
  Country: None (occurrence: None)
  Receive Date: 20120229
  Receipt Date: 20110923
  Transmission Date: 20120608
  Serious: Yes (Other)
  Sender: FDA-Public Use
  Company Number: US-JNJFOC-20111001034

PATIENT
  Age: 47 Year
  Sex: Female

DRUGS (10)
  1. VYTORIN [Concomitant]
  2. FISH OIL (FISH OIL) [Concomitant]
  3. GABAPENTIN [Concomitant]
  4. ASPIRIN [Concomitant]
  5. NEXIUM [Concomitant]
  6. WELLBUTRIN SR [Concomitant]
  7. IBUPROFEN [Suspect]
     Indication: PRODUCT USED FOR UNKNOWN INDICATION
     Dosage: UNKNOWN
  8. CELEBREX [Concomitant]
  9. FLUOXETINE [Concomitant]
  10. CO-Q10 (UBIDECARENONE) [Concomitant]

REACTIONS (1)
  - GASTROINTESTINAL HAEMORRHAGE [None]
